FAERS Safety Report 4378401-X (Version None)
Quarter: 2004Q2

REPORT INFORMATION
  Report Type: 
  Country: None (occurrence: None)
  Receive Date: 20040616
  Receipt Date: 20040611
  Transmission Date: 20050107
  Serious: Yes (Hospitalization)
  Sender: FDA-Public Use
  Company Number: DE-MERCK-0406DEU00080

PATIENT

DRUGS (1)
  1. HYZAAR [Suspect]
     Route: 048
     Dates: start: 20030101

REACTIONS (1)
  - INTESTINAL HAEMORRHAGE [None]
